FAERS Safety Report 24713835 (Version 3)
Quarter: 2025Q1

REPORT INFORMATION
  Report Type: Spontaneous
  Country: US (occurrence: US)
  Receive Date: 20241209
  Receipt Date: 20250220
  Transmission Date: 20250409
  Serious: No
  Sender: INCYTE
  Company Number: US-EVENT-000529

PATIENT

DRUGS (1)
  1. OPZELURA [Suspect]
     Active Substance: RUXOLITINIB PHOSPHATE
     Route: 065

REACTIONS (3)
  - Nervousness [Unknown]
  - Product dose omission issue [Unknown]
  - Product physical issue [Unknown]
